FAERS Safety Report 5119653-8 (Version None)
Quarter: 2006Q3

REPORT INFORMATION
  Report Type: 
  Country: None (occurrence: None)
  Receive Date: 20060929
  Receipt Date: 20060919
  Transmission Date: 20061208
  Serious: Yes (Hospitalization, Other)
  Sender: FDA-Public Use
  Company Number: 230384

PATIENT
  Age: 70 Year
  Sex: Female

DRUGS (9)
  1. ACTIVACIN (ALTEPLASE)PWDR + SOLVENT, INFUSION SOLN [Suspect]
     Indication: CEREBRAL ARTERY EMBOLISM
     Dosage: 37.7 MG, INTRAVENOUS
     Route: 042
     Dates: start: 20060730, end: 20060730
  2. WARFARIN SODIUM [Suspect]
     Indication: ATRIAL FIBRILLATION
     Dosage: 2 MG, ORAL
     Route: 048
  3. RADICUT (EDARAVONE) [Concomitant]
  4. GLYCERIN [Concomitant]
  5. FRUCTOSE [Concomitant]
  6. AMPICILLIN + SULBACTAM (AMPICILLIN, SULBACTAM SODIUM) [Concomitant]
  7. CIBENZOLINE (CIFENLINE) [Concomitant]
  8. VASOLAN (ISOXSUPRINE HYDROCHLORIDE) [Concomitant]
  9. DIGOXIN [Concomitant]

REACTIONS (8)
  - ABDOMINAL DISTENSION [None]
  - ABDOMINAL HAEMATOMA [None]
  - BLOOD GLUCOSE INCREASED [None]
  - CHOLECYSTITIS [None]
  - CHOLELITHIASIS [None]
  - HAEMATURIA [None]
  - OLIGURIA [None]
  - PNEUMONIA ASPIRATION [None]
